FAERS Safety Report 8133374-9 (Version None)
Quarter: 2012Q1

REPORT INFORMATION
  Report Type: 
  Country: None (occurrence: None)
  Receive Date: 20120103
  Receipt Date: 20111024
  Transmission Date: 20120608
  Serious: No
  Sender: FDA-Public Use
  Company Number: AE-2011-001149

PATIENT
  Weight: 61.2356 kg

DRUGS (6)
  1. INCIVEK [Suspect]
     Dosage: 2250 MG (750 MG,1 IN 8 HR),ORAL
     Route: 048
     Dates: start: 20110820
  2. RIBAVIRIN [Concomitant]
  3. CALCIUM CARBONATE [Concomitant]
  4. ASCORBIC ACID [Concomitant]
  5. PEGASYS [Concomitant]
  6. NIACIN [Concomitant]

REACTIONS (2)
  - ANAL PRURITUS [None]
  - HUNGER [None]
